FAERS Safety Report 6149092-2 (Version None)
Quarter: 2009Q2

REPORT INFORMATION
  Report Type: 
  Country: None (occurrence: None)
  Receive Date: 20090409
  Receipt Date: 20090331
  Transmission Date: 20091009
  Serious: Yes (Hospitalization, Other)
  Sender: FDA-Public Use
  Company Number: PHHY2009JP07422

PATIENT

DRUGS (4)
  1. TEGRETOL [Suspect]
     Dosage: 130 DF
     Route: 048
  2. BENZODIAZEPINE DERIVATIVES [Suspect]
     Route: 048
  3. HYPNOTICS AND SEDATIVES [Concomitant]
     Route: 048
  4. ANXIOLYTICS [Concomitant]

REACTIONS (3)
  - CONVULSION [None]
  - ENDOTRACHEAL INTUBATION [None]
  - INTENTIONAL OVERDOSE [None]
